FAERS Safety Report 13692797 (Version 5)
Quarter: 2018Q4

REPORT INFORMATION
  Report Type: Spontaneous
  Country: IT (occurrence: IT)
  Receive Date: 20170627
  Receipt Date: 20181213
  Transmission Date: 20190204
  Serious: Yes (Life-Threatening, Other)
  Sender: FDA-Public Use
  Company Number: IT-009507513-1706ITA009588

PATIENT
  Age: 47 Year
  Sex: Female
  Weight: 52 kg

DRUGS (1)
  1. BRIDION [Suspect]
     Active Substance: SUGAMMADEX
     Indication: NEUROMUSCULAR BLOCKADE REVERSAL
     Dosage: 200 MG, PRN (AS NECESSARY)
     Route: 042
     Dates: start: 20170615, end: 20170615

REACTIONS (4)
  - Atrial fibrillation [Recovered/Resolved]
  - Oxygen saturation decreased [Recovered/Resolved]
  - Bradycardia [Recovered/Resolved]
  - Pulmonary oedema [Recovered/Resolved]

NARRATIVE: CASE EVENT DATE: 20170615
